FAERS Safety Report 4320608-1 (Version None)
Quarter: 2004Q1

REPORT INFORMATION
  Report Type: 
  Country: None (occurrence: None)
  Receive Date: 20040319
  Receipt Date: 20040319
  Transmission Date: 20041129
  Serious: Yes (Death, Hospitalization)
  Sender: FDA-Public Use
  Company Number: None

PATIENT
  Age: 44 Year
  Sex: Male
  Weight: 70.3075 kg

DRUGS (3)
  1. VITAMUNE 200 MG [Suspect]
     Indication: HIV INFECTION
     Dosage: ONE QD X 14 D THEN ONE BID
     Dates: start: 20030226
  2. COMBIVIR [Concomitant]
  3. WELLBUTRIN SR [Concomitant]

REACTIONS (4)
  - ACUTE RESPIRATORY DISTRESS SYNDROME [None]
  - HYPOTENSION [None]
  - RENAL FAILURE [None]
  - STEVENS-JOHNSON SYNDROME [None]
